FAERS Safety Report 7361374-5 (Version None)
Quarter: 2011Q1

REPORT INFORMATION
  Report Type: 
  Country: None (occurrence: None)
  Receive Date: 20110309
  Receipt Date: 20110303
  Transmission Date: 20110831
  Serious: Yes (Hospitalization)
  Sender: FDA-Public Use
  Company Number: 1000017632

PATIENT
  Age: 47 Year
  Sex: Female

DRUGS (6)
  1. BYSTOLIC [Suspect]
     Indication: HYPERTENSION
     Dosage: 10 MG (10 MG, 1 IN 1 D), ORAL
     Route: 048
     Dates: start: 20100701
  2. ASPIRIN [Concomitant]
  3. PLAVIX (CLOPIDOGREL) (75 MILLIGRAM, TABLETS) (CLOPIDOGREL) [Concomitant]
  4. SIMVASTATIN (SIMVASTATIN) (20 MILLIGRAM, TABLETS) (SIMVASTATIN) [Concomitant]
  5. SYNTHROID (LEVOTHYROXINE SODIUM) (150 MICROGRAM, TABLETS) (LEVOTHYROXI [Concomitant]
  6. IRON (IRON) (IRON) [Concomitant]

REACTIONS (6)
  - PAIN IN JAW [None]
  - UNEVALUABLE EVENT [None]
  - OEDEMA PERIPHERAL [None]
  - SWELLING FACE [None]
  - CHEST PAIN [None]
  - STREPTOCOCCAL INFECTION [None]
